APPROVED DRUG PRODUCT: CLOBETASOL PROPIONATE
Active Ingredient: CLOBETASOL PROPIONATE
Strength: 0.05%
Dosage Form/Route: AEROSOL, FOAM;TOPICAL
Application: A208779 | Product #001 | TE Code: AB1
Applicant: TARO PHARMACEUTICAL INDUSTRIES LTD
Approved: Oct 4, 2018 | RLD: No | RS: Yes | Type: RX